FAERS Safety Report 5375684-4 (Version None)
Quarter: 2007Q2

REPORT INFORMATION
  Report Type: 
  Country: None (occurrence: None)
  Receive Date: 20070629
  Receipt Date: 20070625
  Transmission Date: 20071010
  Serious: Yes (Other)
  Sender: FDA-Public Use
  Company Number: US-PFIZER INC-2007052364

PATIENT
  Sex: Female
  Weight: 55 kg

DRUGS (2)
  1. DETROL LA [Suspect]
     Indication: HYPERTONIC BLADDER
     Dosage: TEXT:2MG QD EVERYDAY TDD:2MG
  2. VITAMIN CAP [Concomitant]

REACTIONS (1)
  - BLOOD GLUCOSE DECREASED [None]
